FAERS Safety Report 7750187-8 (Version None)
Quarter: 2011Q3

REPORT INFORMATION
  Report Type: 
  Country: None (occurrence: None)
  Receive Date: 20110914
  Receipt Date: 20110914
  Transmission Date: 20111222
  Serious: Yes (Other)
  Sender: FDA-Public Use
  Company Number: None

PATIENT
  Age: 65 Year
  Sex: Female
  Weight: 91 kg

DRUGS (5)
  1. ENOXAPARIN [Suspect]
     Indication: THROMBOSIS PROPHYLAXIS
     Dosage: 30 MG
     Route: 058
     Dates: start: 20110618, end: 20110621
  2. HYDROMORPHONE IV VIA PCA [Concomitant]
  3. ESTRADIOL [Concomitant]
     Route: 048
  4. CITALOPRAM HYDROBROMIDE [Concomitant]
     Route: 048
  5. AMLODIPINE [Concomitant]
     Route: 048

REACTIONS (6)
  - HAEMATOCRIT ABNORMAL [None]
  - RENAL FAILURE ACUTE [None]
  - POST PROCEDURAL HAEMORRHAGE [None]
  - DIALYSIS [None]
  - HAEMOGLOBIN ABNORMAL [None]
  - NEPHROPATHY TOXIC [None]
